FAERS Safety Report 11004150 (Version 1)
Quarter: 2015Q2

REPORT INFORMATION
  Report Type: Spontaneous
  Country: IN (occurrence: None)
  Receive Date: 20150407
  Receipt Date: 20150407
  Transmission Date: 20150821
  Serious: Yes (Other)
  Sender: FDA-Public Use
  Company Number: FK201501586

PATIENT
  Age: 55 Year
  Sex: Female

DRUGS (3)
  1. CYCLOPHOSPHAMIDE (MANUFACTURER UNKNOWN) (CYCLOPHOSPHAMIDE) (CYCLOPHOSPHAMIDE) [Suspect]
     Active Substance: CYCLOPHOSPHAMIDE
     Indication: CHOLANGIOCARCINOMA
     Dosage: 50 MG, FOR 21 DAYS EVERY 28 DAYS (6 CYCLES), ORAL
     Route: 048
  2. ETOPOSIDE (MANUFACTURER UNKNOWN) (ETOPOSIDE) (ETOPOSIDE) [Suspect]
     Active Substance: ETOPOSIDE
     Indication: CHOLANGIOCARCINOMA
     Dosage: 50 MG, 6 CYCLES, ORAL
     Route: 048
  3. CELECOXIB (CELECOXIB) (CELECOXIB) [Suspect]
     Active Substance: CELECOXIB
     Indication: CHOLANGIOCARCINOMA
     Dosage: 200 MG, 6 CYCLES, ORAL
     Route: 048

REACTIONS (2)
  - Herpes zoster [None]
  - Stomatitis [None]
